FAERS Safety Report 21238039 (Version 2)
Quarter: 2022Q3

REPORT INFORMATION
  Report Type: Report from Study
  Country: BR (occurrence: BR)
  Receive Date: 20220822
  Receipt Date: 20220920
  Transmission Date: 20221027
  Serious: Yes (Other)
  Sender: FDA-Public Use
  Company Number: BR-NOVARTISPH-NVSC2022BR186096

PATIENT
  Age: 5 Year
  Sex: Female
  Weight: 35 kg

DRUGS (1)
  1. ELTROMBOPAG OLAMINE [Suspect]
     Active Substance: ELTROMBOPAG OLAMINE
     Indication: Immune thrombocytopenia
     Dosage: 2 DOSAGE FORM, QD
     Route: 065
     Dates: start: 201808

REACTIONS (2)
  - Platelet count decreased [Unknown]
  - Product supply issue [Unknown]

NARRATIVE: CASE EVENT DATE: 20191201
